FAERS Safety Report 25766378 (Version 2)
Quarter: 2025Q3

REPORT INFORMATION
  Report Type: Spontaneous
  Country: EU (occurrence: EU)
  Receive Date: 20250905
  Receipt Date: 20250912
  Transmission Date: 20251020
  Serious: Yes (Life-Threatening, Hospitalization)
  Sender: MYLAN
  Company Number: EU-MYLANLABS-2025M1075080

PATIENT
  Age: 74 Year
  Sex: Female

DRUGS (5)
  1. AMIODARONE [Suspect]
     Active Substance: AMIODARONE
     Indication: Arrhythmia
  2. DEXMEDETOMIDINE [Suspect]
     Active Substance: DEXMEDETOMIDINE
     Indication: Arrhythmia
  3. METOPROLOL [Suspect]
     Active Substance: METOPROLOL
     Indication: Arrhythmia
  4. LIDOCAINE [Suspect]
     Active Substance: LIDOCAINE
     Indication: Arrhythmia
  5. MAGNESIUM [Suspect]
     Active Substance: MAGNESIUM
     Indication: Arrhythmia

REACTIONS (2)
  - Drug ineffective [Unknown]
  - Off label use [Unknown]
